FAERS Safety Report 24789422 (Version 1)
Quarter: 2024Q4

REPORT INFORMATION
  Report Type: Spontaneous
  Country: US (occurrence: None)
  Receive Date: 20241229
  Receipt Date: 20241229
  Transmission Date: 20250114
  Serious: Yes (Other)
  Sender: Public
  Company Number: None

PATIENT
  Age: 50 Year
  Sex: Female
  Weight: 67.5 kg

DRUGS (4)
  1. BENZONATATE [Suspect]
     Active Substance: BENZONATATE
     Indication: Antitussive therapy
     Dosage: OTHER QUANTITY : 1 CAPSULE(S);?FREQUENCY : AS NEEDED;?
     Route: 048
     Dates: start: 20241227, end: 20241228
  2. ACYCLOVIR [Suspect]
     Active Substance: ACYCLOVIR
     Indication: Viral infection
     Dosage: OTHER QUANTITY : 1 TABLET(S);?OTHER FREQUENCY : 5X/DAY;?
     Route: 048
     Dates: start: 20241227, end: 20241229
  3. BENADRYL [Concomitant]
     Active Substance: DIPHENHYDRAMINE HYDROCHLORIDE
  4. Chestal [Concomitant]

REACTIONS (4)
  - Cough [None]
  - Cough [None]
  - Diaphragmalgia [None]
  - Poor quality sleep [None]

NARRATIVE: CASE EVENT DATE: 20241227
